FAERS Safety Report 6234287-X (Version None)
Quarter: 2009Q2

REPORT INFORMATION
  Report Type: 
  Country: None (occurrence: None)
  Receive Date: 20090618
  Receipt Date: 20090610
  Transmission Date: 20091009
  Serious: Yes (Other)
  Sender: FDA-Public Use
  Company Number: FR-ASTRAZENECA-2009CG00881

PATIENT
  Age: 890 Month
  Sex: Female
  Weight: 62 kg

DRUGS (9)
  1. HYTACAND [Suspect]
     Indication: HYPERTROPHIC CARDIOMYOPATHY
     Dosage: TABLET 16 + 12.5 MG
     Route: 048
     Dates: start: 20080325, end: 20090121
  2. CELECTOL [Concomitant]
     Indication: HYPERTENSION
     Route: 048
     Dates: start: 20020101
  3. KARDEGIC [Concomitant]
     Indication: ARTERITIS OBLITERANS
     Route: 048
     Dates: start: 20070101
  4. LIPANTHYL [Concomitant]
     Indication: DYSLIPIDAEMIA
     Route: 048
     Dates: start: 20040101, end: 20090101
  5. LIPANTHYL [Concomitant]
     Route: 048
     Dates: start: 20090301
  6. VASTAREL [Concomitant]
     Indication: DIZZINESS
     Route: 048
     Dates: start: 20040101
  7. STRUCTUM [Concomitant]
     Indication: OSTEOARTHRITIS
     Route: 048
     Dates: start: 20070101
  8. TEMESTA [Concomitant]
     Route: 048
  9. PROPOFAN [Concomitant]
     Route: 048

REACTIONS (1)
  - RENAL FAILURE CHRONIC [None]
